FAERS Safety Report 8098828-2 (Version None)
Quarter: 2012Q1

REPORT INFORMATION
  Report Type: 
  Country: None (occurrence: None)
  Receive Date: 20120129
  Receipt Date: 20110922
  Transmission Date: 20120608
  Serious: No
  Sender: FDA-Public Use
  Company Number: US-ABBOTT-11P-163-0857516-00

PATIENT
  Sex: Male

DRUGS (4)
  1. HUMIRA [Suspect]
     Dates: end: 20110922
  2. HUMIRA [Suspect]
     Dosage: DAY 8
  3. HUMIRA [Suspect]
     Dosage: DAY 22
  4. HUMIRA [Suspect]
     Indication: PSORIASIS
     Dosage: DAY 0
     Dates: start: 20110831

REACTIONS (2)
  - DRUG INEFFECTIVE [None]
  - PSORIASIS [None]
